FAERS Safety Report 14282757 (Version 1)
Quarter: 2017Q4

REPORT INFORMATION
  Report Type: Spontaneous
  Country: DE (occurrence: DE)
  Receive Date: 20171213
  Receipt Date: 20171213
  Transmission Date: 20180321
  Serious: Yes (Life-Threatening)
  Sender: FDA-Public Use
  Company Number: DE-LINDE-DE-LHC-2017252

PATIENT
  Age: 41 Year
  Sex: Female

DRUGS (1)
  1. CARBON DIOXIDE (GENERIC) [Suspect]
     Active Substance: CARBON DIOXIDE
     Indication: LAPAROSCOPY
     Route: 033

REACTIONS (2)
  - Paradoxical embolism [Recovered/Resolved]
  - Air embolism [Recovered/Resolved]
